FAERS Safety Report 4668379-3 (Version None)
Quarter: 2005Q2

REPORT INFORMATION
  Report Type: 
  Country: None (occurrence: None)
  Receive Date: 20050519
  Receipt Date: 20050511
  Transmission Date: 20051028
  Serious: Yes (Life-Threatening)
  Sender: FDA-Public Use
  Company Number: ENTC2005-0119

PATIENT
  Age: 52 Year
  Sex: Male
  Weight: 85.7 kg

DRUGS (3)
  1. STALEVO 100 [Suspect]
     Indication: PARKINSON'S DISEASE
     Dosage: 200 MG, Q2H, ORAL
     Route: 048
  2. STALEVO 100 [Suspect]
     Dosage: 150 MG Q3H, ORAL
     Route: 048
  3. STALEVO 100 [Suspect]
     Dosage: 5-6 DOSES PER DAY, ORAL
     Route: 048

REACTIONS (4)
  - HYPERTHERMIA MALIGNANT [None]
  - PROCEDURAL COMPLICATION [None]
  - SURGERY [None]
  - TREMOR [None]
